FAERS Safety Report 5302586-1 (Version None)
Quarter: 2007Q2

REPORT INFORMATION
  Report Type: 
  Country: None (occurrence: None)
  Receive Date: 20070419
  Receipt Date: 20070412
  Transmission Date: 20071010
  Serious: Yes (Other)
  Sender: FDA-Public Use
  Company Number: JP-ROXANE LABORATORIES, INC-2007-BP-04992RO

PATIENT
  Age: 31 Year
  Sex: Male
  Weight: 84 kg

DRUGS (5)
  1. BUTORPHANOL TARTRATE [Suspect]
     Indication: ANAESTHESIA
     Dosage: 1 MG X 1 DOSE
  2. MIDAZOLAM HCL [Suspect]
     Indication: ANAESTHESIA
     Dosage: 5 MG X 1 DOSE
  3. VECURONIUM BROMIDE [Suspect]
     Indication: ANAESTHESIA
     Dosage: 8 MG X 1 DOSE
  4. SEVOFLURANE [Suspect]
     Indication: ANAESTHESIA
     Dosage: 2%
  5. RANITIDINE [Concomitant]
     Indication: PROPHYLAXIS
     Route: 048

REACTIONS (4)
  - ATELECTASIS [None]
  - HYPOVENTILATION [None]
  - PARANASAL SINUS HYPERSECRETION [None]
  - SINOBRONCHITIS [None]
